FAERS Safety Report 23682128 (Version 2)
Quarter: 2025Q1

REPORT INFORMATION
  Report Type: Report from Study
  Country: BR (occurrence: BR)
  Receive Date: 20240328
  Receipt Date: 20250131
  Transmission Date: 20250408
  Serious: Yes (Hospitalization)
  Sender: GLAXOSMITHKLINE
  Company Number: BR-GLAXOSMITHKLINE-BR2023AMR148017

PATIENT

DRUGS (5)
  1. BELIMUMAB [Suspect]
     Active Substance: BELIMUMAB
     Indication: Systemic lupus erythematosus
     Route: 042
     Dates: start: 20190129, end: 20190129
  2. BELIMUMAB [Suspect]
     Active Substance: BELIMUMAB
     Route: 042
     Dates: start: 20230718, end: 20230718
  3. BELIMUMAB [Suspect]
     Active Substance: BELIMUMAB
     Route: 042
     Dates: start: 20230815, end: 20230815
  4. BELIMUMAB [Suspect]
     Active Substance: BELIMUMAB
     Route: 042
     Dates: start: 20240109, end: 20240109
  5. BELIMUMAB [Suspect]
     Active Substance: BELIMUMAB
     Route: 042
     Dates: start: 20240208, end: 20240208

REACTIONS (3)
  - Hospitalisation [Recovered/Resolved]
  - Inappropriate schedule of product administration [Not Recovered/Not Resolved]
  - Product dose omission issue [Unknown]

NARRATIVE: CASE EVENT DATE: 20240303
